FAERS Safety Report 7483822-2 (Version None)
Quarter: 2011Q2

REPORT INFORMATION
  Report Type: 
  Country: None (occurrence: None)
  Receive Date: 20110517
  Receipt Date: 20110405
  Transmission Date: 20111010
  Serious: Yes (Other)
  Sender: FDA-Public Use
  Company Number: US-BAYER-201036178NA

PATIENT
  Sex: Female
  Weight: 47.619 kg

DRUGS (2)
  1. PROTONIX [Concomitant]
     Dosage: 40 MG, UNK
  2. YASMIN [Suspect]
     Route: 048
     Dates: start: 20030311, end: 20041228

REACTIONS (3)
  - DYSPEPSIA [None]
  - PAIN [None]
  - GALLBLADDER DISORDER [None]
